FAERS Safety Report 25051431 (Version 1)
Quarter: 2025Q1

REPORT INFORMATION
  Report Type: Spontaneous
  Country: AU (occurrence: AU)
  Receive Date: 20250307
  Receipt Date: 20250307
  Transmission Date: 20250408
  Serious: Yes (Death, Hospitalization, Disabling, Other)
  Sender: GALPHARM INTERNATIONAL
  Company Number: None

PATIENT
  Age: 73 Year
  Sex: Female
  Weight: 43 kg

DRUGS (24)
  1. ACETAMINOPHEN [Suspect]
     Active Substance: ACETAMINOPHEN
     Indication: Product used for unknown indication
     Route: 048
  2. UPTRAVI [Suspect]
     Active Substance: SELEXIPAG
     Indication: Pulmonary arterial hypertension
     Route: 048
     Dates: start: 20230911, end: 20230915
  3. UPTRAVI [Suspect]
     Active Substance: SELEXIPAG
     Dates: start: 20230904
  4. UPTRAVI [Suspect]
     Active Substance: SELEXIPAG
     Dates: start: 20230815
  5. UPTRAVI [Suspect]
     Active Substance: SELEXIPAG
     Dates: start: 20230828, end: 202309
  6. UPTRAVI [Suspect]
     Active Substance: SELEXIPAG
     Dates: end: 20230910
  7. PANTOPRAZOLE SODIUM [Suspect]
     Active Substance: PANTOPRAZOLE SODIUM
     Indication: Product used for unknown indication
     Route: 040
  8. VELETRI [Suspect]
     Active Substance: EPOPROSTENOL
     Indication: Pulmonary arterial hypertension
     Route: 040
     Dates: start: 202309
  9. VELETRI [Suspect]
     Active Substance: EPOPROSTENOL
     Indication: Cardiac failure
     Route: 040
  10. FLOLAN [Suspect]
     Active Substance: EPOPROSTENOL SODIUM
     Indication: Cardiac failure
     Route: 040
     Dates: start: 20230920, end: 202309
  11. FLOLAN [Suspect]
     Active Substance: EPOPROSTENOL SODIUM
     Indication: Pulmonary arterial hypertension
     Route: 040
     Dates: start: 20230920, end: 202309
  12. METHYLPREDNISOLONE ACEPONATE [Suspect]
     Active Substance: METHYLPREDNISOLONE ACEPONATE
     Indication: Product used for unknown indication
     Route: 065
  13. MAGNESIUM ASPARTATE DIHYDRATE [Suspect]
     Active Substance: MAGNESIUM ASPARTATE DIHYDRATE
     Indication: Product used for unknown indication
     Dosage: 1 DOSAGE FORM, QD/1 DF, QD,NOCTE/MAGMIN 1 TABLET NOCTE
     Route: 048
  14. DOCUSATE SODIUM [Suspect]
     Active Substance: DOCUSATE SODIUM
     Indication: Product used for unknown indication
     Route: 065
  15. ASCORBIC ACID\FERROUS SULFATE [Suspect]
     Active Substance: ASCORBIC ACID\FERROUS SULFATE
     Indication: Product used for unknown indication
     Dosage: 1 DF, QD, MANE/2520 MILLIGRAM, 1/DAY/FERRO PLUS C 1 TABLET IN THE MORNING
     Route: 048
  16. FUROSEMIDE [Suspect]
     Active Substance: FUROSEMIDE
     Indication: Product used for unknown indication
     Dosage: 40 MILLIGRAM, QOD
     Route: 048
  17. FUROSEMIDE [Suspect]
     Active Substance: FUROSEMIDE
     Dosage: 20 MILLIGRAM, QOD
  18. HEPARIN SODIUM [Suspect]
     Active Substance: HEPARIN SODIUM
     Indication: Product used for unknown indication
     Route: 058
  19. NEBIVOLOL [Suspect]
     Active Substance: NEBIVOLOL
     Indication: Product used for unknown indication
     Dosage: 1.25 MILLIGRAM, QD
     Route: 048
  20. OPSUMIT [Suspect]
     Active Substance: MACITENTAN
     Indication: Product used for unknown indication
     Dosage: 10 MILLIGRAM, QD
     Route: 048
     Dates: start: 202112
  21. ROSUVASTATIN CALCIUM [Suspect]
     Active Substance: ROSUVASTATIN CALCIUM
     Indication: Product used for unknown indication
     Dosage: 5 MILLIGRAM, QD
     Route: 048
  22. SODIUM BICARBONATE [Suspect]
     Active Substance: SODIUM BICARBONATE
     Indication: Product used for unknown indication
     Route: 048
  23. PANTOPRAZOLE SODIUM [Suspect]
     Active Substance: PANTOPRAZOLE SODIUM
     Indication: Product used for unknown indication
     Dosage: 40 MILLIGRAM, QD
     Route: 048
  24. TADALAFIL [Concomitant]
     Active Substance: TADALAFIL
     Indication: Product used for unknown indication
     Route: 065

REACTIONS (18)
  - Flatulence [Recovered/Resolved]
  - Renal impairment [Recovering/Resolving]
  - Mouth haemorrhage [Unknown]
  - Fluid retention [Not Recovered/Not Resolved]
  - Lethargy [Unknown]
  - Haemorrhoids [Not Recovered/Not Resolved]
  - Rash pruritic [Not Recovered/Not Resolved]
  - Heart rate decreased [Unknown]
  - Diarrhoea [Recovered/Resolved]
  - Headache [Recovered/Resolved]
  - Dry mouth [Recovering/Resolving]
  - Dyspnoea exertional [Not Recovered/Not Resolved]
  - Pneumonia [Fatal]
  - Loss of personal independence in daily activities [Fatal]
  - Diarrhoea [Fatal]
  - Hypotension [Fatal]
  - Epistaxis [Fatal]
  - Heart rate increased [Fatal]

NARRATIVE: CASE EVENT DATE: 20230101
